FAERS Safety Report 6600469-8 (Version None)
Quarter: 2010Q1

REPORT INFORMATION
  Report Type: 
  Country: None (occurrence: None)
  Receive Date: 20100223
  Receipt Date: 20100223
  Transmission Date: 20100710
  Serious: Yes (Hospitalization)
  Sender: FDA-Public Use
  Company Number: None

PATIENT
  Age: 83 Year
  Sex: Male
  Weight: 78 kg

DRUGS (1)
  1. IODIXANOL [Suspect]
     Indication: SURGERY
     Dates: start: 20090327, end: 20090327

REACTIONS (2)
  - HEPATIC ENZYME INCREASED [None]
  - RENAL FAILURE ACUTE [None]
